FAERS Safety Report 12491767 (Version 2)
Quarter: 2017Q2

REPORT INFORMATION
  Report Type: Report from Study
  Country: US (occurrence: US)
  Receive Date: 20160623
  Receipt Date: 20170620
  Transmission Date: 20170830
  Serious: Yes (Hospitalization, Other)
  Sender: FDA-Public Use
  Company Number: US-BIOGEN-2009BI030405

PATIENT
  Age: 42 Year
  Sex: Female

DRUGS (6)
  1. AVONEX [Suspect]
     Active Substance: INTERFERON BETA-1A
     Route: 030
     Dates: start: 201407, end: 20150428
  2. AVONEX [Suspect]
     Active Substance: INTERFERON BETA-1A
     Route: 030
     Dates: end: 201407
  3. AVONEX [Suspect]
     Active Substance: INTERFERON BETA-1A
     Route: 030
     Dates: start: 20140624
  4. AVONEX [Suspect]
     Active Substance: INTERFERON BETA-1A
     Indication: MULTIPLE SCLEROSIS
     Route: 030
  5. AVONEX [Suspect]
     Active Substance: INTERFERON BETA-1A
     Route: 030
     Dates: start: 20000222
  6. THEOPHYLLINE [Concomitant]
     Active Substance: THEOPHYLLINE ANHYDROUS
     Indication: ASTHMA
     Route: 065

REACTIONS (18)
  - Hangover [Unknown]
  - Myocardial infarction [Recovered/Resolved]
  - Gait disturbance [Not Recovered/Not Resolved]
  - Limb discomfort [Not Recovered/Not Resolved]
  - Therapeutic response shortened [Unknown]
  - Influenza like illness [Recovered/Resolved]
  - Feeling hot [Unknown]
  - Fatigue [Unknown]
  - Hypertension [Not Recovered/Not Resolved]
  - Asthenia [Not Recovered/Not Resolved]
  - Coronary artery occlusion [Unknown]
  - Intervertebral disc protrusion [Not Recovered/Not Resolved]
  - Optic neuritis [Not Recovered/Not Resolved]
  - Muscular weakness [Recovered/Resolved]
  - Road traffic accident [Recovered/Resolved]
  - Malaise [Recovered/Resolved]
  - Depression [Unknown]
  - Hypothyroidism [Not Recovered/Not Resolved]

NARRATIVE: CASE EVENT DATE: 20000222
